FAERS Safety Report 5236521-1 (Version None)
Quarter: 2007Q1

REPORT INFORMATION
  Report Type: 
  Country: None (occurrence: None)
  Receive Date: 20070208
  Receipt Date: 20070126
  Transmission Date: 20070707
  Serious: Yes (Other)
  Sender: FDA-Public Use
  Company Number: PHNU2007DE00766

PATIENT
  Age: 44 Year
  Sex: Male

DRUGS (1)
  1. LAMISIL [Suspect]
     Indication: TINEA PEDIS
     Dosage: UNK, UNK, TOPICAL
     Route: 061
     Dates: start: 20070120

REACTIONS (3)
  - PRURITUS GENERALISED [None]
  - RASH MACULAR [None]
  - RASH PUSTULAR [None]
